FAERS Safety Report 8425572-1 (Version None)
Quarter: 2012Q2

REPORT INFORMATION
  Report Type: 
  Country: None (occurrence: None)
  Receive Date: 20120611
  Receipt Date: 20120531
  Transmission Date: 20120825
  Serious: Yes (Other)
  Sender: FDA-Public Use
  Company Number: JP-VERTEX PHARMACEUTICALS INC.-AE-2012-008215

PATIENT
  Age: 56 Year
  Sex: Male

DRUGS (11)
  1. ALLEGRA [Concomitant]
     Route: 048
     Dates: start: 20120507, end: 20120513
  2. TELAVIC (TELAPREVIR) [Suspect]
     Indication: HEPATITIS C
     Route: 048
     Dates: start: 20120409, end: 20120521
  3. RIBAVIRIN [Concomitant]
     Route: 048
     Dates: start: 20120528
  4. RIBAVIRIN [Concomitant]
     Indication: HEPATITIS C
     Route: 048
     Dates: start: 20120409, end: 20120425
  5. RINEDRON V [Concomitant]
     Route: 061
     Dates: start: 20120413, end: 20120506
  6. ALLEGRA [Concomitant]
     Route: 048
     Dates: start: 20120514
  7. CLOBETASOL PROPIONATE [Concomitant]
     Route: 051
     Dates: start: 20120507
  8. PEGINTERFERON ALFA-2B [Concomitant]
     Indication: HEPATITIS C
     Route: 051
     Dates: start: 20120409, end: 20120514
  9. PEGINTERFERON ALFA-2B [Concomitant]
     Route: 051
     Dates: start: 20120521
  10. XYZAL [Concomitant]
     Route: 048
     Dates: start: 20120521
  11. RIBAVIRIN [Concomitant]
     Route: 048
     Dates: start: 20120426

REACTIONS (1)
  - RETINOPATHY [None]
